FAERS Safety Report 5393540-2 (Version None)
Quarter: 2007Q3

REPORT INFORMATION
  Report Type: 
  Country: None (occurrence: None)
  Receive Date: 20070723
  Receipt Date: 20060831
  Transmission Date: 20080115
  Serious: No
  Sender: FDA-Public Use
  Company Number: A0615299A

PATIENT
  Age: 52 Year
  Sex: Female

DRUGS (9)
  1. AVANDIA [Suspect]
     Dosage: 4MG PER DAY
     Route: 048
  2. AMARYL [Concomitant]
  3. VITAMIN B-12 [Concomitant]
  4. TYLENOL (CAPLET) [Concomitant]
  5. FUROSEMIDE [Concomitant]
  6. LIBRAX [Concomitant]
  7. IMODIUM [Concomitant]
  8. LIPITOR [Concomitant]
  9. LOVASTATIN [Concomitant]

REACTIONS (3)
  - BLADDER MASS [None]
  - BLOOD CHOLESTEROL INCREASED [None]
  - HAEMATURIA [None]
